FAERS Safety Report 14505595 (Version 1)
Quarter: 2018Q1

REPORT INFORMATION
  Report Type: Spontaneous
  Country: US (occurrence: US)
  Receive Date: 20180208
  Receipt Date: 20180208
  Transmission Date: 20180509
  Serious: No
  Sender: FDA-Public Use
  Company Number: PHEH2018US003439

PATIENT
  Sex: Female

DRUGS (1)
  1. DIOVAN [Suspect]
     Active Substance: VALSARTAN
     Indication: GESTATIONAL HYPERTENSION
     Dosage: 320 MG, QD
     Route: 048

REACTIONS (2)
  - Maternal exposure during pregnancy [Unknown]
  - Exposure via breast milk [Unknown]
